FAERS Safety Report 4469254-X (Version None)
Quarter: 2004Q4

REPORT INFORMATION
  Report Type: 
  Country: None (occurrence: None)
  Receive Date: 20041005
  Receipt Date: 20041005
  Transmission Date: 20050328
  Serious: Yes (Death)
  Sender: FDA-Public Use
  Company Number: None

PATIENT
  Age: 45 Year
  Sex: Male

DRUGS (1)
  1. CEFTIN [Suspect]
     Indication: CELLULITIS
     Dosage: 250 MG BID ORAL
     Route: 048
     Dates: start: 20040827, end: 20040829

REACTIONS (3)
  - ACUTE RESPIRATORY DISTRESS SYNDROME [None]
  - SEPSIS [None]
  - TOXIC EPIDERMAL NECROLYSIS [None]
